FAERS Safety Report 4875987-3 (Version None)
Quarter: 2005Q4

REPORT INFORMATION
  Report Type: 
  Country: None (occurrence: None)
  Receive Date: 20051206
  Receipt Date: 20051020
  Transmission Date: 20060501
  Serious: No
  Sender: FDA-Public Use
  Company Number: IND-AE-05-SAN-064

PATIENT
  Age: 81 Year
  Sex: Male
  Weight: 90.7194 kg

DRUGS (2)
  1. SANCTURA [Suspect]
     Indication: HYPERTONIC BLADDER
     Dosage: 20 MG-BID-ORAL
     Route: 048
     Dates: start: 20051006, end: 20051018
  2. LIPITOR [Concomitant]

REACTIONS (1)
  - CONSTIPATION [None]
